FAERS Safety Report 9109801 (Version 2)
Quarter: 2013Q1

REPORT INFORMATION
  Report Type: Report from Study
  Country: DK (occurrence: AT)
  Receive Date: 20130222
  Receipt Date: 20130313
  Transmission Date: 20140127
  Serious: Yes (Hospitalization)
  Sender: FDA-Public Use
  Company Number: AT-FRI-1000042800

PATIENT
  Sex: Female

DRUGS (10)
  1. ESCITALOPRAM [Suspect]
     Indication: DEPRESSION
     Dosage: 5 MG
     Route: 048
     Dates: start: 20130121, end: 20130124
  2. ESCITALOPRAM [Suspect]
     Dosage: 10 MG
     Route: 048
     Dates: start: 20130125, end: 20130128
  3. STABLON [Suspect]
     Dosage: 37.5
     Route: 048
     Dates: start: 20130107, end: 20130128
  4. CYMBALTA [Suspect]
     Dosage: 60
     Dates: start: 20130129
  5. TRITTICO [Concomitant]
     Dosage: 200
     Dates: start: 20130116
  6. DOMINAL [Concomitant]
     Dosage: 80
     Dates: start: 20130107
  7. VALDOXAN [Concomitant]
     Dosage: 25
     Dates: start: 20130114, end: 20130122
  8. VALDOXAN [Concomitant]
     Dosage: 50
     Dates: start: 20130123, end: 20130128
  9. VALDOXAN [Concomitant]
     Dosage: 50
     Dates: start: 20130130
  10. CETIRIZIN [Concomitant]
     Dosage: 20
     Dates: start: 20130128

REACTIONS (2)
  - Dermatitis atopic [Recovered/Resolved]
  - Urticaria [Recovered/Resolved]
